FAERS Safety Report 6654572-7 (Version None)
Quarter: 2010Q1

REPORT INFORMATION
  Report Type: 
  Country: None (occurrence: None)
  Receive Date: 20100326
  Receipt Date: 20100318
  Transmission Date: 20100710
  Serious: Yes (Other)
  Sender: FDA-Public Use
  Company Number: US-ROCHE-692319

PATIENT
  Age: 52 Year
  Sex: Female
  Weight: 106.8 kg

DRUGS (3)
  1. TAMIFLU [Suspect]
     Indication: INFLUENZA
     Route: 048
     Dates: start: 20100314
  2. OMNICEF [Concomitant]
  3. IBUPROFEN [Concomitant]

REACTIONS (7)
  - ANXIETY [None]
  - BRADYPHRENIA [None]
  - CRYING [None]
  - EYE DISORDER [None]
  - FATIGUE [None]
  - HALLUCINATION, VISUAL [None]
  - IRRITABILITY [None]
